FAERS Safety Report 7230197-X (Version None)
Quarter: 2011Q1

REPORT INFORMATION
  Report Type: 
  Country: None (occurrence: None)
  Receive Date: 20110118
  Receipt Date: 20110117
  Transmission Date: 20110831
  Serious: Yes (Hospitalization, Other)
  Sender: FDA-Public Use
  Company Number: AT-PFIZER INC-2006056144

PATIENT
  Age: 57 Year
  Sex: Male
  Weight: 60 kg

DRUGS (7)
  1. LASILACTON [Concomitant]
     Dosage: 20/50
     Route: 048
     Dates: start: 20050601
  2. DURAGESIC-100 [Concomitant]
     Dosage: 25 MCG/H
     Route: 062
     Dates: start: 20060504
  3. SUNITINIB MALATE [Suspect]
     Indication: GASTROINTESTINAL STROMAL TUMOUR
     Dosage: 50 MG, 1X/DAY
     Route: 048
     Dates: start: 20060330, end: 20060524
  4. ACEMIN [Concomitant]
     Dosage: 5 MG, UNK
     Route: 048
     Dates: start: 20060412
  5. ACECOMB [Concomitant]
     Dosage: 10 MG, UNK
     Route: 048
     Dates: start: 20060415
  6. DURAGESIC-100 [Concomitant]
     Dosage: 25 MCG/H
     Route: 062
     Dates: start: 20060201, end: 20060424
  7. ARANESP [Concomitant]
     Dosage: TDD 500 UG
     Route: 058
     Dates: start: 20060510, end: 20060510

REACTIONS (2)
  - HYPOGLYCAEMIA [None]
  - EPILEPSY [None]
